FAERS Safety Report 6979161-6 (Version None)
Quarter: 2010Q3

REPORT INFORMATION
  Report Type: 
  Country: None (occurrence: None)
  Receive Date: 20100913
  Receipt Date: 20100908
  Transmission Date: 20110219
  Serious: Yes (Death, Other)
  Sender: FDA-Public Use
  Company Number: PHFR2010GB01220

PATIENT
  Sex: Male
  Weight: 93 kg

DRUGS (5)
  1. CLOZARIL [Suspect]
     Indication: SCHIZOPHRENIA
     Dosage: UNK
     Route: 048
     Dates: start: 19911028
  2. CLOZARIL [Suspect]
     Dosage: 375MG DAILY
     Route: 048
  3. CLOZARIL [Suspect]
     Dosage: 350MG DAILY
     Route: 048
  4. LANSOPRAZOLE [Concomitant]
     Dosage: UNK
  5. NULYTELY [Concomitant]

REACTIONS (14)
  - ABDOMINAL PAIN [None]
  - ANTIPSYCHOTIC DRUG LEVEL INCREASED [None]
  - ARRHYTHMIA [None]
  - ARTERIOSCLEROSIS [None]
  - ARTERIOSCLEROSIS CORONARY ARTERY [None]
  - CARDIOMEGALY [None]
  - CIRCULATORY COLLAPSE [None]
  - CONSTIPATION [None]
  - DEATH [None]
  - HALLUCINATION, AUDITORY [None]
  - PULMONARY CONGESTION [None]
  - PULMONARY OEDEMA [None]
  - SKIN DISCOLOURATION [None]
  - VOMITING [None]
